FAERS Safety Report 6633280-2 (Version None)
Quarter: 2010Q1

REPORT INFORMATION
  Report Type: 
  Country: None (occurrence: None)
  Receive Date: 20100312
  Receipt Date: 20100303
  Transmission Date: 20100710
  Serious: Yes (Other)
  Sender: FDA-Public Use
  Company Number: CN-PFIZER INC-2010027097

PATIENT

DRUGS (1)
  1. SUTENT [Suspect]
     Indication: MALIGNANT MELANOMA
     Dosage: UNK

REACTIONS (2)
  - DYSPHONIA [None]
  - PALATAL OEDEMA [None]
